FAERS Safety Report 8917066 (Version 1)
Quarter: 2012Q4

REPORT INFORMATION
  Report Type: 
  Country: US (occurrence: US)
  Receive Date: 20121120
  Receipt Date: 20121120
  Transmission Date: 20130627
  Serious: Yes (Other)
  Sender: FDA-Public Use
  Company Number: US-ROCHE-1154546

PATIENT
  Age: 70 Year
  Sex: Female

DRUGS (2)
  1. VEMURAFENIB [Suspect]
     Indication: METASTATIC MALIGNANT MELANOMA
     Route: 065
     Dates: start: 201108
  2. VEMURAFENIB [Suspect]
     Route: 065

REACTIONS (2)
  - Acantholysis [Not Recovered/Not Resolved]
  - Skin disorder [Not Recovered/Not Resolved]
